FAERS Safety Report 13765371 (Version 4)
Quarter: 2017Q3

REPORT INFORMATION
  Report Type: Report from Study
  Country: US (occurrence: BR)
  Receive Date: 20170718
  Receipt Date: 20170929
  Transmission Date: 20171127
  Serious: Yes (Other)
  Sender: FDA-Public Use
  Company Number: US-SUNOVION-2017SUN003137

PATIENT
  Sex: Female
  Weight: 56 kg

DRUGS (4)
  1. ALENIA [Concomitant]
     Active Substance: BUDESONIDE\FORMOTEROL FUMARATE
  2. INDACATEROL AND GLYCOPYRROLATE [Suspect]
     Active Substance: GLYCOPYRROLATE\INDACATEROL MALEATE
     Indication: CHRONIC OBSTRUCTIVE PULMONARY DISEASE
  3. SPIRIVA [Concomitant]
     Active Substance: TIOTROPIUM BROMIDE MONOHYDRATE
  4. INDACATEROL AND GLYCOPYRROLATE [Suspect]
     Active Substance: GLYCOPYRROLATE\INDACATEROL MALEATE
     Indication: EMPHYSEMA
     Dosage: 1 DF, QD (50UG GLYCOPYRRONIUM,110UG INDACATEROL) MORNING AFTER BREAKFAST
     Route: 065

REACTIONS (9)
  - Tachycardia [Unknown]
  - Malaise [Unknown]
  - Fatigue [Recovering/Resolving]
  - Lung perforation [Unknown]
  - Anger [Unknown]
  - Oxygen consumption decreased [Unknown]
  - Dyspnoea [Recovering/Resolving]
  - Drug ineffective [Unknown]
  - Asthenia [Unknown]
